FAERS Safety Report 22702591 (Version 3)
Quarter: 2024Q2

REPORT INFORMATION
  Report Type: Report from Study
  Country: DE (occurrence: DE)
  Receive Date: 20230713
  Receipt Date: 20240619
  Transmission Date: 20240716
  Serious: Yes (Other)
  Sender: FDA-Public Use
  Company Number: DE-PFM-2023-03867

PATIENT
  Sex: Male
  Weight: 72 kg

DRUGS (4)
  1. BRAFTOVI [Suspect]
     Active Substance: ENCORAFENIB
     Indication: Colorectal cancer
     Dosage: 300 MG, DAILY
     Route: 048
     Dates: start: 20230221, end: 20230530
  2. CETUXIMAB [Suspect]
     Active Substance: CETUXIMAB
     Indication: Colorectal cancer
     Dosage: 500 MG/M2, EVERY TWO WEEKS (LIQUID DILUTION)
     Route: 042
     Dates: start: 20230221, end: 20230321
  3. VECTIBIX [Concomitant]
     Active Substance: PANITUMUMAB
     Indication: Biopsy rectum
     Dosage: 440 MG, CYCLICAL
     Route: 042
     Dates: start: 20230404, end: 20230530
  4. VECTIBIX [Concomitant]
     Active Substance: PANITUMUMAB
     Indication: Colorectal cancer

REACTIONS (1)
  - Polyneuropathy [Recovered/Resolved with Sequelae]

NARRATIVE: CASE EVENT DATE: 20230221
